FAERS Safety Report 4334775-7 (Version None)
Quarter: 2004Q2

REPORT INFORMATION
  Report Type: 
  Country: None (occurrence: None)
  Receive Date: 20040407
  Receipt Date: 20040326
  Transmission Date: 20050107
  Serious: Yes (Other)
  Sender: FDA-Public Use
  Company Number: CHNY2004JP00530

PATIENT
  Age: 36 Year
  Sex: Male

DRUGS (6)
  1. TAVEGIL (NCH) (CLEMASTINE HYDROGEN FUMARATE) UNKNOWN [Suspect]
     Indication: ECZEMA
     Dosage: 1 MG, QD, ORAL
     Route: 048
     Dates: start: 20030823, end: 20030901
  2. TAVEGIL (NCH) (CLEMASTINE HYDROGEN FUMARATE) UNKNOWN [Suspect]
     Indication: ECZEMA
     Dosage: 1 MG, QD, ORAL
     Route: 048
     Dates: start: 20030908, end: 20030921
  3. TAVEGIL (NCH) (CLEMASTINE HYDROGEN FUMARATE) UNKNOWN [Suspect]
     Indication: ECZEMA
     Dosage: 1 MG, QD, ORAL
     Route: 048
     Dates: start: 20031027, end: 20031109
  4. TAVEGIL (NCH) (CLEMASTINE HYDROGEN FUMARATE) UNKNOWN [Suspect]
     Indication: ECZEMA
     Dosage: 1 MG, QD, ORAL
     Route: 048
     Dates: start: 20031119, end: 20031125
  5. TAVEGIL (NCH) (CLEMASTINE HYDROGEN FUMARATE) UNKNOWN [Suspect]
     Indication: ECZEMA
     Dosage: 1 MG, QD, ORAL
     Route: 048
     Dates: start: 20031125, end: 20031202
  6. ACIROVEC [Concomitant]

REACTIONS (5)
  - ALOPECIA [None]
  - DISEASE RECURRENCE [None]
  - ECZEMA [None]
  - PHOTOSENSITIVITY REACTION [None]
  - TOXIC SKIN ERUPTION [None]
